FAERS Safety Report 6799596-4 (Version None)
Quarter: 2010Q2

REPORT INFORMATION
  Report Type: 
  Country: None (occurrence: None)
  Receive Date: 20100624
  Receipt Date: 20100615
  Transmission Date: 20101027
  Serious: Yes (Hospitalization, Other)
  Sender: FDA-Public Use
  Company Number: 008376

PATIENT
  Sex: Female
  Weight: 61.2 kg

DRUGS (4)
  1. KEPPRA [Suspect]
     Indication: CONVULSION
     Dosage: (2000 MG BID ORAL)
     Route: 048
  2. LAMICTAL [Concomitant]
  3. SERTRALINE HCL [Concomitant]
  4. BUSPIRONE HCL [Concomitant]

REACTIONS (4)
  - ALOPECIA [None]
  - BRAIN NEOPLASM [None]
  - CONVULSION [None]
  - TONGUE BITING [None]
